FAERS Safety Report 6208833-6 (Version None)
Quarter: 2009Q2

REPORT INFORMATION
  Report Type: 
  Country: None (occurrence: None)
  Receive Date: 20090529
  Receipt Date: 20090520
  Transmission Date: 20091009
  Serious: Yes (Death, Hospitalization)
  Sender: FDA-Public Use
  Company Number: A0781659A

PATIENT
  Age: 76 Year
  Sex: Male
  Weight: 76.8 kg

DRUGS (6)
  1. TYKERB [Suspect]
     Indication: METASTATIC CARCINOMA OF THE BLADDER
     Dosage: 500MG PER DAY
     Route: 048
     Dates: start: 20090401, end: 20090401
  2. NYSTATIN [Concomitant]
     Indication: CANDIDIASIS
     Dosage: 6ML FOUR TIMES PER DAY
     Dates: start: 20081211, end: 20090420
  3. METOCLOPRAMIDE [Concomitant]
     Indication: NAUSEA
     Dosage: 5MG FOUR TIMES PER DAY
     Dates: start: 20090205, end: 20090420
  4. LORAZEPAM [Concomitant]
     Indication: RESTLESSNESS
     Dosage: 1MG PER DAY
     Dates: end: 20090420
  5. CRESTOR [Concomitant]
     Dosage: 5MG PER DAY
     Dates: end: 20090420
  6. FLUCONAZOLE [Concomitant]
     Indication: CANDIDIASIS
     Dosage: 200MG PER DAY
     Dates: start: 20090408, end: 20090420

REACTIONS (5)
  - DEPRESSED LEVEL OF CONSCIOUSNESS [None]
  - DRUG INEFFECTIVE [None]
  - FATIGUE [None]
  - MALIGNANT NEOPLASM PROGRESSION [None]
  - METASTATIC CARCINOMA OF THE BLADDER [None]
